FAERS Safety Report 8313247-9 (Version None)
Quarter: 2012Q2

REPORT INFORMATION
  Report Type: 
  Country: None (occurrence: None)
  Receive Date: 20120424
  Receipt Date: 20120412
  Transmission Date: 20120825
  Serious: Yes (Hospitalization)
  Sender: FDA-Public Use
  Company Number: CA-007894

PATIENT
  Age: 67 Year
  Sex: Male

DRUGS (3)
  1. ASCORBIC ACID [Concomitant]
  2. FIRMAGON [Suspect]
     Indication: PROSTATE CANCER
     Dosage: (80 MG 1X/MONTH SUBCUTANEOUS)
     Route: 058
  3. MULTI-VITAMINS [Concomitant]

REACTIONS (7)
  - DECREASED APPETITE [None]
  - DYSSTASIA [None]
  - APHAGIA [None]
  - RENAL DISORDER [None]
  - ASTHENIA [None]
  - HAEMOGLOBIN DECREASED [None]
  - GENERAL PHYSICAL HEALTH DETERIORATION [None]
